FAERS Safety Report 6043339-9 (Version None)
Quarter: 2009Q1

REPORT INFORMATION
  Report Type: 
  Country: None (occurrence: None)
  Receive Date: 20090120
  Receipt Date: 20090107
  Transmission Date: 20090719
  Serious: Yes (Death)
  Sender: FDA-Public Use
  Company Number: IT-TEVA-183915ISR

PATIENT
  Age: 56 Year
  Sex: Male

DRUGS (13)
  1. PACLITAXEL [Suspect]
  2. CARBOPLATIN [Suspect]
  3. ETOPOSIDE [Suspect]
  4. DEXAMETHASONE [Suspect]
     Indication: PROSTATE CANCER
  5. THALIDOMIDE [Suspect]
  6. MITOXANTRONE [Suspect]
  7. PREDNISONE [Suspect]
  8. ESTRAMUSTINE [Suspect]
  9. EPOGEN [Suspect]
  10. ZOLEDRONIC ACID [Concomitant]
  11. MORPHINE [Concomitant]
     Route: 048
  12. SALICYLATES NOS [Concomitant]
  13. BETA BLOCKING AGENTS [Concomitant]

REACTIONS (1)
  - DISSEMINATED INTRAVASCULAR COAGULATION [None]
